FAERS Safety Report 5967950-6 (Version None)
Quarter: 2008Q4

REPORT INFORMATION
  Report Type: 
  Country: None (occurrence: None)
  Receive Date: 20081121
  Receipt Date: 20081121
  Transmission Date: 20090506
  Serious: Yes (Other)
  Sender: FDA-Public Use
  Company Number: None

PATIENT
  Age: 65 Year
  Sex: Female
  Weight: 83.0083 kg

DRUGS (8)
  1. BAYER HEART ADVANTAGE ASPIRIN (ACETYSALICYCLIC ACID) [Suspect]
     Indication: BLOOD CHOLESTEROL
     Dosage: 1 DF, BID, ORAL : 1 DF, TOTAL DAILY, ORAL
     Route: 048
     Dates: start: 20080717
  2. BAYER HEART ADVANTAGE ASPIRIN (ACETYSALICYCLIC ACID) [Suspect]
     Indication: CEREBROVASCULAR ACCIDENT PROPHYLAXIS
     Dosage: 1 DF, BID, ORAL : 1 DF, TOTAL DAILY, ORAL
     Route: 048
     Dates: start: 20080717
  3. BAYER HEART ADVANTAGE ASPIRIN (ACETYSALICYCLIC ACID) [Suspect]
     Indication: ISCHAEMIC HEART DISEASE PROPHYLAXIS
     Dosage: 1 DF, BID, ORAL : 1 DF, TOTAL DAILY, ORAL
     Route: 048
     Dates: start: 20080717
  4. BAYER HEART ADVANTAGE ASPIRIN (ACETYSALICYCLIC ACID) [Suspect]
     Indication: BLOOD CHOLESTEROL
     Dosage: 1 DF, BID, ORAL : 1 DF, TOTAL DAILY, ORAL
     Route: 048
     Dates: start: 20080718
  5. BAYER HEART ADVANTAGE ASPIRIN (ACETYSALICYCLIC ACID) [Suspect]
     Indication: CEREBROVASCULAR ACCIDENT PROPHYLAXIS
     Dosage: 1 DF, BID, ORAL : 1 DF, TOTAL DAILY, ORAL
     Route: 048
     Dates: start: 20080718
  6. BAYER HEART ADVANTAGE ASPIRIN (ACETYSALICYCLIC ACID) [Suspect]
     Indication: ISCHAEMIC HEART DISEASE PROPHYLAXIS
     Dosage: 1 DF, BID, ORAL : 1 DF, TOTAL DAILY, ORAL
     Route: 048
     Dates: start: 20080718
  7. PRILOSEC [Concomitant]
  8. CITRACAL MAXIMUM PLUS D [Concomitant]

REACTIONS (4)
  - DIZZINESS [None]
  - HAEMATOCHEZIA [None]
  - HAEMORRHOIDAL HAEMORRHAGE [None]
  - HEADACHE [None]
